FAERS Safety Report 9649870 (Version 2)
Quarter: 2013Q4

REPORT INFORMATION
  Report Type: Spontaneous
  Country: US (occurrence: US)
  Receive Date: 20131028
  Receipt Date: 20131028
  Transmission Date: 20140711
  Serious: No
  Sender: FDA-Public Use
  Company Number: US-PURDUE-USA-2012-0087460

PATIENT
  Sex: Female

DRUGS (4)
  1. OXYCONTIN TABLETS [Suspect]
     Indication: PAIN
     Dosage: 180 MG, DAILY
  2. MARIJUANA [Concomitant]
     Indication: PAIN
  3. MARIJUANA [Concomitant]
     Indication: NAUSEA
  4. VICODIN [Concomitant]

REACTIONS (7)
  - Drug withdrawal syndrome [Unknown]
  - Cognitive disorder [Unknown]
  - Quality of life decreased [Unknown]
  - Pain [Unknown]
  - Sedation [Unknown]
  - Nausea [Unknown]
  - Unevaluable event [Unknown]
